FAERS Safety Report 23976712 (Version 7)
Quarter: 2024Q4

REPORT INFORMATION
  Report Type: Spontaneous
  Country: GR (occurrence: GR)
  Receive Date: 20240614
  Receipt Date: 20241016
  Transmission Date: 20250115
  Serious: No
  Sender: PFIZER
  Company Number: GR-PFIZER INC-202400172990

PATIENT
  Age: 13 Year
  Sex: Male
  Weight: 55 kg

DRUGS (2)
  1. GENOTROPIN [Suspect]
     Active Substance: SOMATROPIN
     Indication: Growth hormone deficiency
     Dosage: 11 MG, WEEKLY
     Route: 058
     Dates: start: 20220606
  2. ARIMIDEX [Concomitant]
     Active Substance: ANASTROZOLE
     Indication: Growth retardation
     Dosage: 1 MG, 1X1

REACTIONS (2)
  - Expired device used [Unknown]
  - Device mechanical issue [Unknown]

NARRATIVE: CASE EVENT DATE: 20240301
